FAERS Safety Report 19796848 (Version 3)
Quarter: 2021Q3

REPORT INFORMATION
  Report Type: Report from Study
  Country: US (occurrence: US)
  Receive Date: 20210907
  Receipt Date: 20210920
  Transmission Date: 20211014
  Serious: Yes (Hospitalization)
  Sender: FDA-Public Use
  Company Number: NVSC2021US202369

PATIENT
  Sex: Female

DRUGS (1)
  1. ADAKVEO [Suspect]
     Active Substance: CRIZANLIZUMAB-TMCA
     Indication: PRODUCT USED FOR UNKNOWN INDICATION
     Route: 065

REACTIONS (8)
  - Gastroenteritis viral [Unknown]
  - Infusion site pain [Unknown]
  - Vitamin B12 decreased [Unknown]
  - Tooth infection [Unknown]
  - Memory impairment [Unknown]
  - Feeling of body temperature change [Unknown]
  - Drug ineffective [Unknown]
  - Cognitive disorder [Unknown]
